FAERS Safety Report 5045031-6 (Version None)
Quarter: 2006Q3

REPORT INFORMATION
  Report Type: 
  Country: None (occurrence: None)
  Receive Date: 20060707
  Receipt Date: 20060627
  Transmission Date: 20061208
  Serious: Yes (Other)
  Sender: FDA-Public Use
  Company Number: PHBS2006BR09746

PATIENT
  Age: 51 Year
  Sex: Female
  Weight: 54 kg

DRUGS (3)
  1. LEXOTAN [Concomitant]
     Indication: INSOMNIA
     Dosage: 3 MG/D
     Route: 048
     Dates: start: 19960101
  2. TRILEPTAL [Suspect]
     Indication: EPILEPSY
     Route: 048
     Dates: start: 20051001
  3. NICOTINIC ACID [Suspect]
     Indication: BLOOD TRIGLYCERIDES ABNORMAL
     Route: 065

REACTIONS (1)
  - ANAPHYLACTIC SHOCK [None]
